FAERS Safety Report 6764138-6 (Version None)
Quarter: 2010Q2

REPORT INFORMATION
  Report Type: 
  Country: None (occurrence: None)
  Receive Date: 20100610
  Receipt Date: 20100604
  Transmission Date: 20101027
  Serious: Yes (Hospitalization)
  Sender: FDA-Public Use
  Company Number: A0832246A

PATIENT
  Age: 62 Year
  Sex: Female

DRUGS (1)
  1. AVANDIA [Suspect]
     Indication: DIABETES MELLITUS
     Dosage: 8MG PER DAY
     Route: 048
     Dates: start: 20020101, end: 20090511

REACTIONS (3)
  - CORONARY ARTERIAL STENT INSERTION [None]
  - CORONARY ARTERY BYPASS [None]
  - CORONARY ARTERY DISEASE [None]
